FAERS Safety Report 20263103 (Version 2)
Quarter: 2022Q2

REPORT INFORMATION
  Report Type: Spontaneous
  Country: US (occurrence: US)
  Receive Date: 20211231
  Receipt Date: 20220507
  Transmission Date: 20220720
  Serious: No
  Sender: FDA-Public Use
  Company Number: US-SA-SAC20211229000543

PATIENT
  Age: 32 Year
  Sex: Female

DRUGS (2)
  1. DUPIXENT [Suspect]
     Active Substance: DUPILUMAB
     Indication: Eczema
     Dosage: UNK UNK, 1X
     Route: 058
  2. DUPIXENT [Suspect]
     Active Substance: DUPILUMAB
     Dosage: 300 MG, QOW
     Route: 058
     Dates: start: 20211215

REACTIONS (7)
  - Alopecia [Unknown]
  - Condition aggravated [Unknown]
  - Pain in extremity [Not Recovered/Not Resolved]
  - Muscle twitching [Not Recovered/Not Resolved]
  - Neuralgia [Not Recovered/Not Resolved]
  - Eye pain [Not Recovered/Not Resolved]
  - Dry eye [Unknown]

NARRATIVE: CASE EVENT DATE: 20220401
